FAERS Safety Report 8117354-5 (Version None)
Quarter: 2012Q1

REPORT INFORMATION
  Report Type: 
  Country: None (occurrence: None)
  Receive Date: 20120206
  Receipt Date: 20120126
  Transmission Date: 20120608
  Serious: Yes (Other)
  Sender: FDA-Public Use
  Company Number: DE-ASTRAZENECA-2012SE05820

PATIENT
  Sex: Female

DRUGS (1)
  1. ATACAND HCT [Suspect]
     Dosage: 32+25 MG DAILY
     Route: 048

REACTIONS (1)
  - HYPERTENSIVE CRISIS [None]
